FAERS Safety Report 16357744 (Version 5)
Quarter: 2019Q3

REPORT INFORMATION
  Report Type: Spontaneous
  Country: IE (occurrence: IE)
  Receive Date: 20190527
  Receipt Date: 20190911
  Transmission Date: 20191004
  Serious: Yes (Life-Threatening, Hospitalization, Other)
  Sender: FDA-Public Use
  Company Number: PHHY2019IE121405

PATIENT
  Age: 83 Year
  Sex: Male
  Weight: 80 kg

DRUGS (4)
  1. PARACETAMOL [Interacting]
     Active Substance: ACETAMINOPHEN
     Indication: PYREXIA
     Dosage: 1 G,
     Route: 048
     Dates: start: 20170826, end: 20171008
  2. PARACETAMOL [Suspect]
     Active Substance: ACETAMINOPHEN
     Indication: ANALGESIC THERAPY
     Dosage: UNK
     Route: 042
  3. FLOXAPEN [Interacting]
     Active Substance: FLUCLOXACILLIN
     Indication: DEVICE RELATED INFECTION
     Dosage: 2 G, Q6H (HIGH DOSE)
     Route: 042
     Dates: start: 20170829, end: 20171008
  4. FLOXAPEN [Interacting]
     Active Substance: FLUCLOXACILLIN
     Indication: STAPHYLOCOCCAL INFECTION

REACTIONS (9)
  - Coma [Recovered/Resolved]
  - Pyroglutamate increased [Recovered/Resolved]
  - Renal impairment [Recovered/Resolved]
  - Metabolic acidosis [Recovered/Resolved]
  - Depressed level of consciousness [Recovered/Resolved]
  - Nervous system disorder [Recovered/Resolved]
  - Acidosis [Recovered/Resolved]
  - Drug interaction [Recovering/Resolving]
  - Hepatic function abnormal [Recovered/Resolved]

NARRATIVE: CASE EVENT DATE: 20171008
